FAERS Safety Report 5145153-5 (Version None)
Quarter: 2006Q4

REPORT INFORMATION
  Report Type: 
  Country: None (occurrence: None)
  Receive Date: 20061107
  Receipt Date: 20061031
  Transmission Date: 20070319
  Serious: Yes (Death)
  Sender: FDA-Public Use
  Company Number: 2006SE05896

PATIENT
  Age: 68 Year
  Sex: Male
  Weight: 140 kg

DRUGS (3)
  1. CRESTOR [Suspect]
     Indication: HYPERCHOLESTEROLAEMIA
     Route: 048
     Dates: start: 20061020, end: 20061028
  2. SEROPRAM [Concomitant]
  3. TIAPRID [Concomitant]

REACTIONS (7)
  - BLOOD CREATINE PHOSPHOKINASE INCREASED [None]
  - CARDIAC FAILURE ACUTE [None]
  - CARDIOPULMONARY FAILURE [None]
  - FALL [None]
  - HAEMODIALYSIS [None]
  - HEPATORENAL SYNDROME [None]
  - RENAL FAILURE ACUTE [None]
